FAERS Safety Report 21878319 (Version 6)
Quarter: 2023Q1

REPORT INFORMATION
  Report Type: Spontaneous
  Country: GB (occurrence: GB)
  Receive Date: 20230118
  Receipt Date: 20230313
  Transmission Date: 20230417
  Serious: Yes (Hospitalization, Disabling, Other)
  Sender: FDA-Public Use
  Company Number: GB-EMA-DD-20201012-faizan_m-143142

PATIENT
  Age: 73 Year
  Sex: Male
  Weight: 100 kg

DRUGS (78)
  1. BENDAMUSTINE [Suspect]
     Active Substance: BENDAMUSTINE
     Indication: Mantle cell lymphoma
     Dosage: UNK ONCE DAILY (CYCLIC)
     Route: 041
     Dates: start: 20200309, end: 20200309
  2. BENDAMUSTINE [Suspect]
     Active Substance: BENDAMUSTINE
     Route: 042
     Dates: start: 20200309, end: 20200309
  3. BENDAMUSTINE [Suspect]
     Active Substance: BENDAMUSTINE
     Route: 041
     Dates: start: 20200309, end: 20200309
  4. BENDAMUSTINE [Suspect]
     Active Substance: BENDAMUSTINE
     Route: 041
     Dates: start: 20200309, end: 20200309
  5. BENDAMUSTINE [Suspect]
     Active Substance: BENDAMUSTINE
     Route: 041
     Dates: start: 20210309
  6. BENDAMUSTINE [Suspect]
     Active Substance: BENDAMUSTINE
     Route: 041
     Dates: start: 20200309, end: 20200309
  7. BENDAMUSTINE [Suspect]
     Active Substance: BENDAMUSTINE
     Route: 041
     Dates: start: 20210309
  8. BENDAMUSTINE [Suspect]
     Active Substance: BENDAMUSTINE
     Dosage: UNK ONCE DAILY (CYCLIC)
     Route: 042
     Dates: start: 20200309, end: 20200309
  9. BENDAMUSTINE [Suspect]
     Active Substance: BENDAMUSTINE
     Route: 041
     Dates: start: 20210309, end: 20210309
  10. BENDAMUSTINE [Suspect]
     Active Substance: BENDAMUSTINE
     Route: 042
     Dates: start: 20200309, end: 20200309
  11. BENDAMUSTINE [Suspect]
     Active Substance: BENDAMUSTINE
     Dosage: CUMULATIVE DOSE: 1.0 DF)
     Route: 042
     Dates: start: 20200309, end: 20200309
  12. BENDAMUSTINE [Suspect]
     Active Substance: BENDAMUSTINE
     Route: 041
     Dates: start: 20210309
  13. BENDAMUSTINE [Suspect]
     Active Substance: BENDAMUSTINE
     Route: 041
     Dates: start: 20210309
  14. BENDAMUSTINE [Suspect]
     Active Substance: BENDAMUSTINE
     Dosage: CUMULATIVE DOSE: 1440.0DF
     Route: 041
     Dates: start: 20200309, end: 20200309
  15. BENDAMUSTINE [Suspect]
     Active Substance: BENDAMUSTINE
     Route: 041
     Dates: start: 20200309, end: 20200309
  16. BENDAMUSTINE [Suspect]
     Active Substance: BENDAMUSTINE
     Route: 042
     Dates: start: 20200309, end: 20200309
  17. BENDAMUSTINE [Suspect]
     Active Substance: BENDAMUSTINE
     Route: 042
  18. BENDAMUSTINE [Suspect]
     Active Substance: BENDAMUSTINE
     Route: 041
     Dates: start: 20200309
  19. BENDAMUSTINE [Suspect]
     Active Substance: BENDAMUSTINE
     Route: 041
     Dates: start: 20200309
  20. BENDAMUSTINE [Suspect]
     Active Substance: BENDAMUSTINE
     Route: 042
     Dates: start: 20200309, end: 20200309
  21. BENDAMUSTINE [Suspect]
     Active Substance: BENDAMUSTINE
     Route: 041
     Dates: start: 20210309
  22. BENDAMUSTINE [Suspect]
     Active Substance: BENDAMUSTINE
     Route: 041
     Dates: start: 20210309
  23. BENDAMUSTINE [Suspect]
     Active Substance: BENDAMUSTINE
     Route: 041
     Dates: start: 20200309
  24. BENDAMUSTINE [Suspect]
     Active Substance: BENDAMUSTINE
     Route: 042
     Dates: start: 20200309, end: 20200309
  25. BENDAMUSTINE [Suspect]
     Active Substance: BENDAMUSTINE
     Route: 041
     Dates: start: 20210309
  26. BENDAMUSTINE [Suspect]
     Active Substance: BENDAMUSTINE
     Route: 041
     Dates: start: 20200309, end: 20200309
  27. BENDAMUSTINE [Suspect]
     Active Substance: BENDAMUSTINE
     Dosage: CUMULATIVE DOSE: 1440.0DF
     Route: 041
     Dates: start: 20200309, end: 20200309
  28. BENDAMUSTINE [Suspect]
     Active Substance: BENDAMUSTINE
     Route: 042
     Dates: start: 20200309, end: 20200309
  29. BENDAMUSTINE [Suspect]
     Active Substance: BENDAMUSTINE
     Route: 042
     Dates: start: 20200309, end: 20200309
  30. BENDAMUSTINE [Suspect]
     Active Substance: BENDAMUSTINE
     Route: 041
     Dates: start: 20200309, end: 20200309
  31. BENDAMUSTINE [Suspect]
     Active Substance: BENDAMUSTINE
     Route: 041
     Dates: start: 20200309
  32. BENDAMUSTINE [Suspect]
     Active Substance: BENDAMUSTINE
     Route: 041
     Dates: start: 20200309
  33. BENDAMUSTINE [Suspect]
     Active Substance: BENDAMUSTINE
     Route: 042
     Dates: start: 20200309, end: 20200309
  34. BENDAMUSTINE [Suspect]
     Active Substance: BENDAMUSTINE
     Route: 041
     Dates: start: 20210309
  35. BENDAMUSTINE [Suspect]
     Active Substance: BENDAMUSTINE
     Route: 040
     Dates: start: 20200309, end: 20200309
  36. BENDAMUSTINE [Suspect]
     Active Substance: BENDAMUSTINE
     Route: 042
     Dates: start: 20200309, end: 20200309
  37. BENDAMUSTINE [Suspect]
     Active Substance: BENDAMUSTINE
     Route: 041
     Dates: start: 20200309, end: 20200309
  38. BENDAMUSTINE [Suspect]
     Active Substance: BENDAMUSTINE
     Route: 041
     Dates: start: 20200309, end: 20200309
  39. BENDAMUSTINE [Suspect]
     Active Substance: BENDAMUSTINE
     Route: 041
     Dates: start: 20210309, end: 20210309
  40. BENDAMUSTINE [Suspect]
     Active Substance: BENDAMUSTINE
     Route: 041
     Dates: start: 20210309
  41. CYTARABINE [Suspect]
     Active Substance: CYTARABINE
     Indication: Mantle cell lymphoma
     Dosage: 20 MG, QD (ON 11 MAR 2020, HE RECEIVED MOST RECENT DOSE OF CYTARABINE PRIOR TO EVENT ONSET)
     Route: 041
     Dates: start: 20200309, end: 20210311
  42. CYTARABINE [Suspect]
     Active Substance: CYTARABINE
     Dosage: UNK (LAST ADMINISTERED ON 11-MAR-2020); MOST RECENT DOSE ON 11/MAR/2020
     Route: 041
     Dates: start: 20200309, end: 20200311
  43. CYTARABINE [Suspect]
     Active Substance: CYTARABINE
     Route: 041
     Dates: start: 20200115, end: 20200303
  44. CYTARABINE [Suspect]
     Active Substance: CYTARABINE
     Dosage: MOST RECENT DOSE ON 11/MAR/2020
     Route: 041
     Dates: start: 20200309, end: 20200311
  45. CYTARABINE [Suspect]
     Active Substance: CYTARABINE
     Dosage: MOST RECENT DOSE ON 11/MAR/2020
     Route: 041
     Dates: start: 20200115, end: 20200303
  46. CYTARABINE [Suspect]
     Active Substance: CYTARABINE
     Route: 065
     Dates: start: 20210309, end: 20210311
  47. CYTARABINE [Suspect]
     Active Substance: CYTARABINE
     Route: 041
     Dates: start: 20200309
  48. CYTARABINE [Suspect]
     Active Substance: CYTARABINE
     Route: 041
     Dates: start: 20210309, end: 20210311
  49. CYTARABINE [Suspect]
     Active Substance: CYTARABINE
     Dosage: 20 MG, QD (ON 11 MAR 2020, HE RECEIVED MOST RECENT DOSE OF CYTARABINE PRIOR TO EVENT ONSET)
     Route: 041
     Dates: start: 20200309, end: 20200311
  50. CYTARABINE [Suspect]
     Active Substance: CYTARABINE
     Route: 041
     Dates: start: 20200303
  51. CYTARABINE [Suspect]
     Active Substance: CYTARABINE
     Route: 065
     Dates: start: 20200311
  52. CYTARABINE [Suspect]
     Active Substance: CYTARABINE
     Dosage: MOST RECENT DOSE ON 11/MAR/2020
     Route: 041
     Dates: start: 20200309, end: 20210311
  53. CYTARABINE [Suspect]
     Active Substance: CYTARABINE
     Dosage: 20 MG, QD, ADDITIONAL INFO: LAST ADMINISTERED ON 11-MAR-2020 (DOSE FORM: 386)
     Route: 041
     Dates: start: 20200115, end: 20200303
  54. CYTARABINE [Suspect]
     Active Substance: CYTARABINE
     Dosage: 20 MG, QD (ON 11 MAR 2020, HE RECEIVED MOST RECENT DOSE OF CYTARABINE PRIOR TO EVENT ONSET)
     Route: 041
     Dates: start: 20200115, end: 20200303
  55. CYTARABINE [Suspect]
     Active Substance: CYTARABINE
     Dosage: MOST RECENT DOSE ON 11/MAR/2020
     Route: 041
     Dates: start: 20200115, end: 20200303
  56. CYTARABINE [Suspect]
     Active Substance: CYTARABINE
     Route: 041
     Dates: start: 20200115, end: 20200303
  57. CYTARABINE [Suspect]
     Active Substance: CYTARABINE
     Dosage: 20 MG, QD (ON 11 MAR 2020, HE RECEIVED MOST RECENT DOSE OF CYTARABINE PRIOR TO EVENT ONSET)
     Route: 041
     Dates: start: 20200309, end: 20210311
  58. CYTARABINE [Suspect]
     Active Substance: CYTARABINE
     Route: 040
     Dates: start: 20200311
  59. CYTARABINE [Suspect]
     Active Substance: CYTARABINE
     Route: 041
     Dates: start: 20200311
  60. CYTARABINE [Suspect]
     Active Substance: CYTARABINE
     Route: 041
     Dates: start: 20200303
  61. RITUXIMAB [Suspect]
     Active Substance: RITUXIMAB
     Indication: Mantle cell lymphoma
     Route: 041
     Dates: start: 20200309, end: 20200309
  62. RITUXIMAB [Suspect]
     Active Substance: RITUXIMAB
     Route: 041
     Dates: start: 20200309, end: 20200309
  63. RITUXIMAB [Suspect]
     Active Substance: RITUXIMAB
     Route: 041
     Dates: start: 20200303, end: 20200309
  64. RITUXIMAB [Suspect]
     Active Substance: RITUXIMAB
     Route: 041
     Dates: start: 20200309, end: 20200309
  65. RITUXIMAB [Suspect]
     Active Substance: RITUXIMAB
     Route: 041
     Dates: start: 20200309
  66. RITUXIMAB [Suspect]
     Active Substance: RITUXIMAB
     Route: 041
     Dates: start: 20200303, end: 20200309
  67. RITUXIMAB [Suspect]
     Active Substance: RITUXIMAB
     Dosage: 1 DF, ADDITIONAL INFO: LAST DOSE ADMINISTERED ON 09-MAR-2020 (DOSE FORM: 16)
     Route: 041
     Dates: end: 20200309
  68. PARSACLISIB [Suspect]
     Active Substance: PARSACLISIB
     Indication: Mantle cell lymphoma
     Dosage: 20 MG, QD (DOSE PRIOR TO THE SERIOUS ADVERSE EVENTS (SAES) WAS TAKEN ON 03MAR2020)?20 MILLIGRAM DAIL
     Route: 048
     Dates: start: 20200115, end: 20200303
  69. PARSACLISIB [Suspect]
     Active Substance: PARSACLISIB
     Dosage: 20 MG, QD (DOSE PRIOR TO THE SERIOUS ADVERSE EVENTS (SAES) WAS TAKEN ON 03MAR2020)?20 MILLIGRAM DAIL
     Route: 048
     Dates: start: 20200115, end: 20200303
  70. PARSACLISIB [Suspect]
     Active Substance: PARSACLISIB
     Route: 048
     Dates: start: 20200115, end: 20200303
  71. MEROPENEM [Concomitant]
     Active Substance: MEROPENEM
     Indication: Cough
     Route: 065
     Dates: start: 20200319
  72. MEROPENEM [Concomitant]
     Active Substance: MEROPENEM
     Indication: Malaise
  73. MEROPENEM [Concomitant]
     Active Substance: MEROPENEM
     Indication: Decreased appetite
     Route: 065
     Dates: start: 20200309
  74. MEROPENEM [Concomitant]
     Active Substance: MEROPENEM
     Indication: Malaise
  75. ACETAMINOPHEN [Concomitant]
     Active Substance: ACETAMINOPHEN
     Indication: Cough
     Route: 065
     Dates: start: 20210319
  76. ACETAMINOPHEN [Concomitant]
     Active Substance: ACETAMINOPHEN
     Indication: Malaise
     Dates: start: 20200319
  77. ACETAMINOPHEN [Concomitant]
     Active Substance: ACETAMINOPHEN
     Indication: Decreased appetite
     Route: 065
     Dates: start: 20200309
  78. ACETAMINOPHEN [Concomitant]
     Active Substance: ACETAMINOPHEN
     Indication: Malaise

REACTIONS (7)
  - Bronchitis [Recovered/Resolved]
  - Neutropenic sepsis [Recovered/Resolved]
  - Pneumonia [Recovered/Resolved]
  - Neutrophil count decreased [Recovered/Resolved]
  - Intentional product use issue [Unknown]
  - Product use in unapproved indication [Unknown]
  - Off label use [Unknown]

NARRATIVE: CASE EVENT DATE: 20200309
